FAERS Safety Report 5426222-9 (Version None)
Quarter: 2007Q3

REPORT INFORMATION
  Report Type: 
  Country: None (occurrence: None)
  Receive Date: 20070827
  Receipt Date: 20070816
  Transmission Date: 20080115
  Serious: Yes (Hospitalization)
  Sender: FDA-Public Use
  Company Number: GB-ROCHE-512072

PATIENT
  Age: 72 Year
  Sex: Female
  Weight: 96.1 kg

DRUGS (4)
  1. ORLISTAT [Suspect]
     Indication: OBESITY
     Route: 048
     Dates: start: 20070618, end: 20070702
  2. ASPIRIN [Concomitant]
     Indication: ANTICOAGULANT THERAPY
  3. INSULIN [Concomitant]
  4. 1 UNSPECIFIED DRUG [Concomitant]

REACTIONS (1)
  - GASTROINTESTINAL CARCINOMA [None]
